FAERS Safety Report 4274043-5 (Version None)
Quarter: 2004Q1

REPORT INFORMATION
  Report Type: 
  Country: None (occurrence: None)
  Receive Date: 20040115
  Receipt Date: 20040107
  Transmission Date: 20041129
  Serious: Yes (Disabling)
  Sender: FDA-Public Use
  Company Number: 2004193442NL

PATIENT
  Age: 79 Year
  Sex: Male

DRUGS (1)
  1. CELEBREX [Suspect]
     Indication: BACK PAIN
     Dosage: 200 MG, QD, ORAL
     Route: 048
     Dates: start: 20030801, end: 20031201

REACTIONS (1)
  - RETINAL VASCULAR DISORDER [None]
